FAERS Safety Report 18470734 (Version 2)
Quarter: 2020Q4

REPORT INFORMATION
  Report Type: Other
  Country: KR (occurrence: KR)
  Receive Date: 20201105
  Receipt Date: 20201127
  Transmission Date: 20210114
  Serious: Yes (Hospitalization)
  Sender: FDA-Public Use
  Company Number: KR-ROCHE-2704536

PATIENT
  Age: 51 Year
  Sex: Female

DRUGS (21)
  1. DEXAMETHASONE DISODIUM PHOSPHATE [Concomitant]
     Active Substance: DEXAMETHASONE SODIUM PHOSPHATE
     Route: 042
     Dates: start: 20200924
  2. DEXAMETHASONE DISODIUM PHOSPHATE [Concomitant]
     Active Substance: DEXAMETHASONE SODIUM PHOSPHATE
     Route: 042
     Dates: start: 20200924
  3. MEGACE ORAL SUSPENSION [Concomitant]
     Route: 048
     Dates: start: 20201005
  4. ROSUZET [Concomitant]
     Active Substance: EZETIMIBE\ROSUVASTATIN
     Route: 048
     Dates: start: 20201005
  5. EZETROL [Concomitant]
     Active Substance: EZETIMIBE
     Route: 048
     Dates: start: 20201018, end: 20201021
  6. XGEVA [Concomitant]
     Active Substance: DENOSUMAB
     Route: 058
     Dates: start: 20200925
  7. PHOSTEN [Concomitant]
     Route: 042
     Dates: start: 20201025, end: 20201025
  8. CRESNON [Concomitant]
     Route: 048
     Dates: start: 20201018, end: 20201021
  9. PARAMACET [Concomitant]
     Active Substance: ACETAMINOPHEN\TRAMADOL
     Route: 048
     Dates: start: 20200916, end: 20201004
  10. CRESNON [Concomitant]
     Route: 048
     Dates: start: 20201025
  11. NEUTROGIN [Concomitant]
     Active Substance: LENOGRASTIM
     Dosage: 250 MCG
     Route: 058
     Dates: start: 20201005, end: 20201006
  12. TARGIN [Concomitant]
     Active Substance: NALOXONE HYDROCHLORIDE\OXYCODONE HYDROCHLORIDE
     Route: 048
     Dates: start: 20201005
  13. PERTUZUMAB. [Suspect]
     Active Substance: PERTUZUMAB
     Indication: BREAST CANCER
     Route: 042
     Dates: start: 20201019
  14. TYLENOL [Concomitant]
     Active Substance: ACETAMINOPHEN
     Route: 048
     Dates: start: 20201019, end: 20201020
  15. PLETAAL [Concomitant]
     Active Substance: CILOSTAZOL
     Route: 048
     Dates: start: 20201005
  16. TRASTUZUMAB. [Suspect]
     Active Substance: TRASTUZUMAB
     Indication: BREAST CANCER
     Route: 042
     Dates: start: 20200924
  17. DOCETAXEL. [Suspect]
     Active Substance: DOCETAXEL
     Indication: BREAST CANCER
     Dosage: 80 B SA
     Route: 042
     Dates: start: 20200925
  18. HADCAL [Concomitant]
     Route: 048
     Dates: start: 20201005
  19. PHENIRAMINE [Concomitant]
     Active Substance: PHENIRAMINE
     Route: 058
     Dates: start: 20200924
  20. IRCODON [Concomitant]
     Active Substance: OXYCODONE HYDROCHLORIDE
     Route: 048
     Dates: start: 20201005
  21. EZETROL [Concomitant]
     Active Substance: EZETIMIBE
     Route: 048
     Dates: start: 20201025

REACTIONS (2)
  - Vomiting [Recovered/Resolved]
  - Febrile neutropenia [Recovered/Resolved]

NARRATIVE: CASE EVENT DATE: 20201025
